FAERS Safety Report 5922888-5 (Version None)
Quarter: 2008Q4

REPORT INFORMATION
  Report Type: 
  Country: None (occurrence: None)
  Receive Date: 20081017
  Receipt Date: 20081010
  Transmission Date: 20090506
  Serious: Yes (Death)
  Sender: FDA-Public Use
  Company Number: US-GENENTECH-269155

PATIENT
  Age: 45 Year
  Sex: Female

DRUGS (5)
  1. RITUXAN [Suspect]
     Indication: PANCYTOPENIA
     Dosage: 375 MG/M2, 1/WEEK
     Dates: start: 20051013, end: 20051103
  2. RITUXAN [Suspect]
     Dosage: 375 MG/M2, 1/WEEK
     Dates: start: 20060206, end: 20060226
  3. RITUXAN [Suspect]
     Dosage: 375 MG/M2, 1/WEEK
     Dates: start: 20060909, end: 20061010
  4. RITUXAN [Suspect]
     Dosage: 375 MG/M2, 1/WEEK
     Dates: end: 20070718
  5. PREDNISONE TAB [Concomitant]
     Indication: AUTOIMMUNE DISORDER
     Dosage: UNK
     Dates: start: 20030101

REACTIONS (1)
  - PROGRESSIVE MULTIFOCAL LEUKOENCEPHALOPATHY [None]
